FAERS Safety Report 7326405-7 (Version None)
Quarter: 2011Q1

REPORT INFORMATION
  Report Type: 
  Country: None (occurrence: None)
  Receive Date: 20110223
  Receipt Date: 20110209
  Transmission Date: 20110831
  Serious: Yes (Death)
  Sender: FDA-Public Use
  Company Number: JPI-P-013855

PATIENT
  Age: 84 Year
  Sex: Male

DRUGS (2)
  1. XYREM [Suspect]
     Indication: PRODUCT USED FOR UNKNOWN INDICATION
     Dosage: 4.5 MG (2.25 GM, 2 IN 1 D), ORAL; 3.5 GM FIRST DOSE/1.5 GM SECOND DOSE), ORAL
     Route: 048
     Dates: start: 20050812
  2. XYREM [Suspect]
     Indication: PRODUCT USED FOR UNKNOWN INDICATION
     Dosage: 4.5 MG (2.25 GM, 2 IN 1 D), ORAL; 3.5 GM FIRST DOSE/1.5 GM SECOND DOSE), ORAL
     Route: 048
     Dates: start: 20060315, end: 20101228

REACTIONS (1)
  - DEATH [None]
